FAERS Safety Report 4708108-8 (Version None)
Quarter: 2005Q3

REPORT INFORMATION
  Report Type: 
  Country: None (occurrence: None)
  Receive Date: 20050707
  Receipt Date: 20050621
  Transmission Date: 20060218
  Serious: Yes (Other)
  Sender: FDA-Public Use
  Company Number: PHBS2005BR08921

PATIENT
  Age: 67 Year
  Sex: Female
  Weight: 65 kg

DRUGS (7)
  1. TOFRANIL [Suspect]
     Indication: DEPRESSION
     Dosage: 25 MG, TID
     Dates: start: 20050406
  2. TOFRANIL [Suspect]
     Dosage: 25 MG, BID
     Route: 048
  3. TOFRANIL [Suspect]
     Dosage: 25 MG, QD
     Route: 048
  4. TOFRANIL [Suspect]
     Dosage: 12.5 MG, QD
     Route: 048
  5. OLCADIL [Suspect]
     Indication: DEPRESSION
     Dosage: UNK, UNK
     Route: 065
     Dates: start: 20050406
  6. CLONAZEPAM [Concomitant]
     Route: 048
  7. DIAZEPAM [Concomitant]
     Indication: DEPRESSION
     Dosage: 5 MG, BID
     Route: 048

REACTIONS (12)
  - ABDOMINAL PAIN [None]
  - ABDOMINAL PAIN UPPER [None]
  - AGITATION [None]
  - BILIARY COLIC [None]
  - DIZZINESS [None]
  - DYSGEUSIA [None]
  - INSOMNIA [None]
  - POISONING [None]
  - RETCHING [None]
  - SKIN DISORDER [None]
  - TACHYCARDIA [None]
  - WEIGHT DECREASED [None]
